FAERS Safety Report 17333288 (Version 1)
Quarter: 2020Q1

REPORT INFORMATION
  Report Type: Spontaneous
  Country: CN (occurrence: CN)
  Receive Date: 20200128
  Receipt Date: 20200128
  Transmission Date: 20200409
  Serious: Yes (Hospitalization)
  Sender: FDA-Public Use
  Company Number: CN-SCIEGEN PHARMACEUTICALS INC-2020SCILIT00014

PATIENT
  Age: 89 Year
  Sex: Female

DRUGS (3)
  1. GABAPENTIN TABLETS [Suspect]
     Active Substance: GABAPENTIN
  2. PREGABALIN. [Interacting]
     Active Substance: PREGABALIN
  3. VALIUM [Interacting]
     Active Substance: DIAZEPAM

REACTIONS (3)
  - Toxicity to various agents [Unknown]
  - Dysphagia [Recovered/Resolved]
  - Myoclonus [Recovered/Resolved]
